FAERS Safety Report 13682794 (Version 1)
Quarter: 2017Q2

REPORT INFORMATION
  Report Type: Spontaneous
  Country: US (occurrence: US)
  Receive Date: 20170623
  Receipt Date: 20170623
  Transmission Date: 20170830
  Serious: No
  Sender: FDA-Public Use
  Company Number: US-MALLINCKRODT-T201700041

PATIENT
  Sex: Female
  Weight: 86 kg

DRUGS (1)
  1. H.P. ACTHAR [Suspect]
     Active Substance: CORTICOTROPIN
     Indication: MULTIPLE SCLEROSIS
     Dosage: 80U/1ML DAILY FOR 5 DAYS, THEN 1ML DAILY X3DAYS THE FOLLOWING MONTH
     Route: 058
     Dates: start: 201612

REACTIONS (5)
  - Erythema [Unknown]
  - Swelling face [Unknown]
  - Headache [Unknown]
  - Eye swelling [Unknown]
  - Visual impairment [Unknown]
